FAERS Safety Report 5930740-4 (Version None)
Quarter: 2008Q4

REPORT INFORMATION
  Report Type: 
  Country: None (occurrence: None)
  Receive Date: 20081022
  Receipt Date: 20081013
  Transmission Date: 20090506
  Serious: Yes (Hospitalization)
  Sender: FDA-Public Use
  Company Number: GXKR2008GB09759

PATIENT
  Age: 51 Year
  Sex: Female

DRUGS (3)
  1. ACETYLSALICYLIC ACID SRT [Suspect]
     Indication: ANGINA PECTORIS
     Dosage: 300 MG, QD, ORAL; 75 MG, DAILY,
     Route: 048
     Dates: start: 20080929, end: 20080930
  2. AMLODIPINE [Concomitant]
  3. CANDESARTAN (CANDESARTAN) UNKNOWN [Concomitant]

REACTIONS (2)
  - PERIPHERAL COLDNESS [None]
  - TREMOR [None]
